FAERS Safety Report 5154556-4 (Version None)
Quarter: 2006Q4

REPORT INFORMATION
  Report Type: 
  Country: None (occurrence: None)
  Receive Date: 20061114
  Receipt Date: 20061027
  Transmission Date: 20070319
  Serious: Yes (Other)
  Sender: FDA-Public Use
  Company Number: 06-001278

PATIENT
  Age: 48 Year
  Sex: Female

DRUGS (3)
  1. DURICEF [Suspect]
     Indication: URINARY TRACT INFECTION
     Dosage: 500 MG ORAL
     Route: 048
     Dates: start: 20060807
  2. AMITRIPTYLINE HCL [Concomitant]
  3. NORTRIPTYLINE HCL [Concomitant]

REACTIONS (1)
  - DIARRHOEA HAEMORRHAGIC [None]
